FAERS Safety Report 8332809-6 (Version None)
Quarter: 2012Q2

REPORT INFORMATION
  Report Type: 
  Country: None (occurrence: None)
  Receive Date: 20120503
  Receipt Date: 20120423
  Transmission Date: 20120825
  Serious: Yes (Other)
  Sender: FDA-Public Use
  Company Number: FR-ACCORD-013337

PATIENT

DRUGS (5)
  1. FLUOROURACIL [Suspect]
     Indication: COLORECTAL CANCER
  2. IRINOTECAN HCL [Suspect]
     Indication: COLORECTAL CANCER
  3. CETUXIMAB [Suspect]
     Indication: COLORECTAL CANCER
  4. OXALIPLATIN [Suspect]
     Indication: COLORECTAL CANCER
  5. LEUCOVORIN CALCIUM [Suspect]
     Indication: COLORECTAL CANCER

REACTIONS (1)
  - PNEUMATOSIS INTESTINALIS [None]
